FAERS Safety Report 10651498 (Version 3)
Quarter: 2015Q1

REPORT INFORMATION
  Report Type: Report from Study
  Country: US (occurrence: US)
  Receive Date: 20141215
  Receipt Date: 20150109
  Transmission Date: 20150720
  Serious: Yes (Hospitalization)
  Sender: FDA-Public Use
  Company Number: US-009507513-1411USA003541

PATIENT
  Age: 71 Year
  Sex: Female
  Weight: 89.7 kg

DRUGS (14)
  1. ZOFRAN [Concomitant]
     Active Substance: ONDANSETRON HYDROCHLORIDE
     Indication: VOMITING
  2. LIPITOR [Concomitant]
     Active Substance: ATORVASTATIN CALCIUM
     Indication: BLOOD CHOLESTEROL INCREASED
     Dosage: 10 MG, QD
     Route: 048
     Dates: start: 201201
  3. METOPROLOL [Concomitant]
     Active Substance: METOPROLOL
     Indication: HYPERTENSION
     Dosage: 25 MG, BID
     Route: 048
     Dates: start: 20140427
  4. ZOFRAN [Concomitant]
     Active Substance: ONDANSETRON HYDROCHLORIDE
     Indication: NAUSEA
     Dosage: TOTAL DAILY DOSE: 24 MG, FREQUENCY: OTHER
     Route: 048
     Dates: start: 20121018
  5. LORAZEPAM. [Concomitant]
     Active Substance: LORAZEPAM
     Indication: ANXIETY
     Dosage: 1 MG, TID
     Route: 048
     Dates: start: 20121018
  6. TYLENOL [Concomitant]
     Active Substance: ACETAMINOPHEN
     Indication: EMBOLISM
     Dosage: TOTAL DAILY DOSE: 3900 MG, FREQUENCY: OTHER
     Route: 048
     Dates: start: 20101101
  7. OXYCODONE [Concomitant]
     Active Substance: OXYCODONE
     Indication: CANCER PAIN
     Dosage: 10 MG, QID
     Route: 048
     Dates: start: 20141007
  8. PEMBROLIZUMAB. [Suspect]
     Active Substance: PEMBROLIZUMAB
     Indication: TRANSITIONAL CELL CARCINOMA
     Dosage: 10 MG/KG, Q2W
     Route: 042
     Dates: start: 20130930, end: 20141007
  9. COMPAZINE (PROCHLORPERAZINE MALEATE) [Concomitant]
     Indication: VOMITING
  10. PEMBROLIZUMAB. [Suspect]
     Active Substance: PEMBROLIZUMAB
     Dosage: 10 MG/KG, Q2W
     Route: 042
     Dates: start: 20141021, end: 20141021
  11. OXYCODONE [Concomitant]
     Active Substance: OXYCODONE
     Indication: BACK PAIN
     Dosage: TOTAL DAILY DOSE: 10 MG, PRN
     Route: 048
     Dates: start: 20140830
  12. OXYCODONE [Concomitant]
     Active Substance: OXYCODONE
     Dosage: TOTAL DAILY DOSE: 40 MG, PRN
     Route: 048
     Dates: start: 20141007
  13. PEMBROLIZUMAB. [Suspect]
     Active Substance: PEMBROLIZUMAB
     Dosage: 10 MG/KG, Q2W
     Route: 042
     Dates: start: 20141106
  14. COMPAZINE (PROCHLORPERAZINE MALEATE) [Concomitant]
     Indication: NAUSEA
     Dosage: TOTAL DAILY DOSE: 40 MG, FREQUENCY: OTHER
     Route: 048
     Dates: start: 20121018

REACTIONS (1)
  - Embolism [Recovered/Resolved]

NARRATIVE: CASE EVENT DATE: 20141031
